FAERS Safety Report 20323266 (Version 1)
Quarter: 2022Q1

REPORT INFORMATION
  Report Type: Spontaneous
  Country: US (occurrence: None)
  Receive Date: 20220111
  Receipt Date: 20220111
  Transmission Date: 20220424
  Serious: No
  Sender: FDA-Public Use
  Company Number: None

PATIENT
  Age: 72 Year
  Sex: Female
  Weight: 60 kg

DRUGS (2)
  1. RITUXAN [Suspect]
     Active Substance: RITUXIMAB
     Indication: Granulomatosis with polyangiitis
     Dosage: OTHER FREQUENCY : EVERY 5 MONTHS;?
     Route: 042
     Dates: start: 20170620, end: 20220111
  2. GAMMAGARD [Suspect]
     Active Substance: HUMAN IMMUNOGLOBULIN G
     Indication: Granulomatosis with polyangiitis
     Dosage: OTHER FREQUENCY : ONCE MONTHLY;?
     Route: 042
     Dates: start: 20201027, end: 20220111

REACTIONS (1)
  - Death [None]

NARRATIVE: CASE EVENT DATE: 20220111
